FAERS Safety Report 4374860-7 (Version None)
Quarter: 2004Q2

REPORT INFORMATION
  Report Type: 
  Country: None (occurrence: None)
  Receive Date: 20040602
  Receipt Date: 20031001
  Transmission Date: 20050107
  Serious: Yes (Hospitalization, Other)
  Sender: FDA-Public Use
  Company Number: US-JNJFOC-20031101266

PATIENT
  Age: 64 Year
  Sex: Female
  Weight: 63.3 kg

DRUGS (9)
  1. PROPULSID [Suspect]
     Indication: GASTROOESOPHAGEAL REFLUX DISEASE
     Dosage: 20 MG, 2 IN 1 DAY
     Dates: start: 19980522
  2. DIAZIDE (ISONIAZID) [Concomitant]
  3. PREVACID [Concomitant]
  4. MACRODANTIN [Concomitant]
  5. LEVBID (HYOSCYAMINE SULFATE) [Concomitant]
  6. PREMARIN [Concomitant]
  7. AMOXICILLIN [Concomitant]
  8. PRILOSEC [Concomitant]
  9. ZANTAC [Concomitant]

REACTIONS (3)
  - ABDOMINAL PAIN [None]
  - ELECTROCARDIOGRAM QT CORRECTED INTERVAL PROLONGED [None]
  - MEDICATION ERROR [None]
